FAERS Safety Report 6999914-8 (Version None)
Quarter: 2010Q3

REPORT INFORMATION
  Report Type: 
  Country: None (occurrence: None)
  Receive Date: 20100920
  Receipt Date: 20090821
  Transmission Date: 20110219
  Serious: Yes (Disabling)
  Sender: FDA-Public Use
  Company Number: US-ASTRAZENECA-2009SE09548

PATIENT
  Age: 45 Year
  Sex: Female

DRUGS (6)
  1. SEROQUEL XR [Suspect]
     Route: 048
  2. NEURONTIN [Concomitant]
  3. REQUIP [Concomitant]
  4. NARCOTIC PAIN MED [Concomitant]
  5. LAMICTAL [Concomitant]
  6. ABILIFY [Concomitant]
     Dates: start: 20090101

REACTIONS (1)
  - TARDIVE DYSKINESIA [None]
